FAERS Safety Report 14678610 (Version 2)
Quarter: 2018Q2

REPORT INFORMATION
  Report Type: Spontaneous
  Country: JP (occurrence: JP)
  Receive Date: 20180326
  Receipt Date: 20180409
  Transmission Date: 20180711
  Serious: Yes (Death)
  Sender: FDA-Public Use
  Company Number: JP-ACTELION-A-CH2018-169381

PATIENT
  Age: 78 Year
  Sex: Female

DRUGS (2)
  1. TRACLEER [Suspect]
     Active Substance: BOSENTAN
     Indication: PULMONARY ARTERIAL HYPERTENSION
     Dosage: 62.5 MG, BID
     Route: 048
     Dates: start: 20180122
  2. OXYGEN. [Concomitant]
     Active Substance: OXYGEN

REACTIONS (3)
  - Pulmonary arterial hypertension [Unknown]
  - Respiratory failure [Fatal]
  - Condition aggravated [Unknown]

NARRATIVE: CASE EVENT DATE: 20180212
